FAERS Safety Report 8133482-2 (Version None)
Quarter: 2012Q1

REPORT INFORMATION
  Report Type: 
  Country: None (occurrence: None)
  Receive Date: 20120213
  Receipt Date: 20120208
  Transmission Date: 20120608
  Serious: Yes (Hospitalization)
  Sender: FDA-Public Use
  Company Number: CU-ROXANE LABORATORIES, INC.-2011-RO-00423RO

PATIENT
  Age: 2 Year
  Sex: Male

DRUGS (2)
  1. FLECAINIDE [Suspect]
     Dosage: 1 G
  2. FLECAINIDE [Suspect]
     Indication: NODAL ARRHYTHMIA

REACTIONS (1)
  - TOXICITY TO VARIOUS AGENTS [None]
